FAERS Safety Report 8481617-4 (Version None)
Quarter: 2012Q3

REPORT INFORMATION
  Report Type: 
  Country: None (occurrence: None)
  Receive Date: 20120702
  Receipt Date: 20120625
  Transmission Date: 20120928
  Serious: Yes (Hospitalization)
  Sender: FDA-Public Use
  Company Number: FR-B.I. PHARMACEUTICALS,INC./RIDGEFIELD-2012-FF-00765FF

PATIENT
  Sex: Male

DRUGS (6)
  1. SPIRIVA [Suspect]
     Indication: CHRONIC OBSTRUCTIVE PULMONARY DISEASE
     Dosage: ONE PUFF ON MORNING
     Route: 055
  2. AMINOPHYLLINE [Concomitant]
     Dosage: 300 MG
     Route: 048
  3. ALFUZOSIN HCL [Concomitant]
     Route: 048
  4. ANAFRANIL [Suspect]
     Indication: DEPRESSION
     Dosage: 20 MG
     Route: 048
  5. FORLAX [Concomitant]
  6. ASPIRIN [Concomitant]
     Route: 048

REACTIONS (5)
  - FAECALOMA [None]
  - RENAL FAILURE ACUTE [None]
  - URINARY RETENTION [None]
  - CONSTIPATION [None]
  - HYPERKALAEMIA [None]
